FAERS Safety Report 4975236-1 (Version None)
Quarter: 2006Q2

REPORT INFORMATION
  Report Type: 
  Country: None (occurrence: None)
  Receive Date: 20060418
  Receipt Date: 20050412
  Transmission Date: 20061013
  Serious: Yes (Hospitalization, Other)
  Sender: FDA-Public Use
  Company Number: US-MERCK-0504USA02063

PATIENT
  Age: 29 Year
  Sex: Female

DRUGS (4)
  1. VIOXX [Suspect]
     Route: 048
  2. HORMONAL CONTRACEPTIVES (UNSPECIFIED) [Concomitant]
     Route: 065
  3. PERCOCET [Concomitant]
     Route: 065
  4. ZOLOFT [Concomitant]
     Route: 065

REACTIONS (10)
  - ABDOMINAL DISTENSION [None]
  - CARPAL TUNNEL SYNDROME [None]
  - CEREBROVASCULAR ACCIDENT [None]
  - CHOLECYSTITIS CHRONIC [None]
  - COLONIC OBSTRUCTION [None]
  - DRUG EXPOSURE DURING PREGNANCY [None]
  - HYPERLIPIDAEMIA [None]
  - ILEUS [None]
  - OVARIAN DISORDER [None]
  - PARAESTHESIA [None]
